FAERS Safety Report 8369932-6 (Version None)
Quarter: 2012Q2

REPORT INFORMATION
  Report Type: 
  Country: None (occurrence: None)
  Receive Date: 20120518
  Receipt Date: 20120514
  Transmission Date: 20120825
  Serious: Yes (Life-Threatening, Hospitalization)
  Sender: FDA-Public Use
  Company Number: US-SANOFI-AVENTIS-2012SA034441

PATIENT
  Age: 51 Year
  Sex: Male
  Weight: 73.5 kg

DRUGS (6)
  1. DOCETAXEL [Suspect]
     Dosage: OVER 1 HR DAY 1
     Route: 042
     Dates: start: 20111216, end: 20120217
  2. BEVACIZUMAB [Suspect]
     Route: 042
  3. BEVACIZUMAB [Suspect]
     Dosage: OVER 30-90 MIN DAY 1
     Route: 042
     Dates: start: 20111216, end: 20120217
  4. DOCETAXEL [Suspect]
     Route: 042
  5. CARBOPLATIN [Suspect]
     Dosage: OVER 1-2 HRS DAY 1
     Route: 042
     Dates: start: 20111216, end: 20120217
  6. CARBOPLATIN [Suspect]
     Route: 042

REACTIONS (1)
  - RESPIRATORY FAILURE [None]
